FAERS Safety Report 4364480-2 (Version None)
Quarter: 2004Q2

REPORT INFORMATION
  Report Type: 
  Country: None (occurrence: None)
  Receive Date: 20040525
  Receipt Date: 20040518
  Transmission Date: 20050107
  Serious: Yes (Other)
  Sender: FDA-Public Use
  Company Number: DE-GLAXOSMITHKLINE-D0043821A

PATIENT
  Sex: Male

DRUGS (1)
  1. ELMENDOS [Suspect]
     Route: 065

REACTIONS (1)
  - GOUT [None]
